FAERS Safety Report 16570102 (Version 1)
Quarter: 2019Q3

REPORT INFORMATION
  Report Type: Spontaneous
  Country: GB (occurrence: GB)
  Receive Date: 20190715
  Receipt Date: 20190715
  Transmission Date: 20191004
  Serious: Yes (Hospitalization, Other)
  Sender: FDA-Public Use
  Company Number: GB-TEVA-2019-GB-1076985

PATIENT
  Age: 69 Year
  Sex: Female
  Weight: 57.7 kg

DRUGS (23)
  1. NOREPINEPHRINE. [Concomitant]
     Active Substance: NOREPINEPHRINE
  2. LACTULOSE. [Concomitant]
     Active Substance: LACTULOSE
  3. ENALAPRIL [Concomitant]
     Active Substance: ENALAPRIL
  4. LIDOCAINE. [Concomitant]
     Active Substance: LIDOCAINE
  5. GABAPENTIN. [Concomitant]
     Active Substance: GABAPENTIN
  6. SALBUTAMOL [Concomitant]
     Active Substance: ALBUTEROL
  7. LEVETIRACETAM. [Suspect]
     Active Substance: LEVETIRACETAM
     Indication: SEIZURE
     Dosage: 250 MILLIGRAM
     Route: 051
     Dates: start: 20190612
  8. IPRATROPIUM BROMIDE. [Concomitant]
     Active Substance: IPRATROPIUM BROMIDE
  9. CALCIUM CARBONATE. [Concomitant]
     Active Substance: CALCIUM CARBONATE
  10. BISOPROLOL [Concomitant]
     Active Substance: BISOPROLOL
  11. CARBOCISTEINE [Concomitant]
     Active Substance: CARBOCYSTEINE
  12. ACETYLSALICYLIC ACID [Concomitant]
     Active Substance: ASPIRIN
  13. FUROSEMIDE. [Concomitant]
     Active Substance: FUROSEMIDE
  14. SODIUM CHLORIDE. [Concomitant]
     Active Substance: SODIUM CHLORIDE
  15. PREDNISOLONE. [Concomitant]
     Active Substance: PREDNISOLONE
  16. AMIODARONE [Concomitant]
     Active Substance: AMIODARONE
  17. INSULIN [Concomitant]
     Active Substance: INSULIN NOS
  18. MELATONIN [Concomitant]
     Active Substance: MELATONIN
  19. CODEINE [Concomitant]
     Active Substance: CODEINE
  20. MEROPENEM. [Suspect]
     Active Substance: MEROPENEM
     Indication: INFECTION
     Dosage: 1 GRAM
     Route: 051
  21. DOXAZOSIN [Concomitant]
     Active Substance: DOXAZOSIN MESYLATE
  22. CHLORPHENAMINE [Concomitant]
     Active Substance: CHLORPHENIRAMINE MALEATE
  23. CASSIA [Concomitant]

REACTIONS (3)
  - Skin warm [Unknown]
  - Blister [Unknown]
  - Erythema [Unknown]

NARRATIVE: CASE EVENT DATE: 20190612
